FAERS Safety Report 10184686 (Version 1)
Quarter: 2014Q2

REPORT INFORMATION
  Report Type: Spontaneous
  Country: US (occurrence: None)
  Receive Date: 20140519
  Receipt Date: 20140519
  Transmission Date: 20141212
  Serious: Yes (Other)
  Sender: FDA-Public Use
  Company Number: B0992679A

PATIENT
  Age: 74 Year
  Sex: Female

DRUGS (1)
  1. CALCIUM CARBONATE TABLET (CALCIUM CARBONATE) [Suspect]
     Indication: DYSPEPSIA
     Route: 048

REACTIONS (6)
  - Blood pressure increased [None]
  - Blood potassium decreased [None]
  - Sinus tachycardia [None]
  - Milk-alkali syndrome [None]
  - Mental status changes [None]
  - Incorrect dose administered [None]
